FAERS Safety Report 6713049-0 (Version None)
Quarter: 2010Q2

REPORT INFORMATION
  Report Type: 
  Country: None (occurrence: None)
  Receive Date: 20100503
  Receipt Date: 20100422
  Transmission Date: 20101027
  Serious: Yes (Hospitalization)
  Sender: FDA-Public Use
  Company Number: WAES 0903DEU00071

PATIENT
  Age: 45 Year
  Sex: Female

DRUGS (9)
  1. ISENTRESS [Suspect]
     Indication: HIV INFECTION
     Dosage: PO
     Route: 048
     Dates: end: 20080429
  2. PREZISTA [Suspect]
     Indication: HIV INFECTION
     Dosage: 1200 MG PO
     Route: 048
     Dates: start: 20080326, end: 20080429
  3. VICRIVIROC MALEATE [Suspect]
     Indication: HIV INFECTION
     Dosage: PO
     Route: 048
     Dates: end: 20080429
  4. TRUVADA [Suspect]
     Dosage: PO
     Route: 048
     Dates: end: 20080429
  5. NOVAMINSULFON [Concomitant]
  6. THOMAPYRIN [Concomitant]
  7. ACETAMINOPHEN [Concomitant]
  8. ENALAPRIL MALEATE [Concomitant]
  9. POTASSIUM CHLORIDE [Concomitant]

REACTIONS (20)
  - ANAEMIA HAEMOLYTIC AUTOIMMUNE [None]
  - ARTHRALGIA [None]
  - BLOOD CREATINE PHOSPHOKINASE INCREASED [None]
  - DRY EYE [None]
  - DRY MOUTH [None]
  - DRY SKIN [None]
  - EYELID OEDEMA [None]
  - GENERAL PHYSICAL HEALTH DETERIORATION [None]
  - HEADACHE [None]
  - HEPATITIS TOXIC [None]
  - HYPOKALAEMIA [None]
  - PAIN IN EXTREMITY [None]
  - PRURITUS [None]
  - PYREXIA [None]
  - RASH PAPULAR [None]
  - REFUSAL OF TREATMENT BY PATIENT [None]
  - SEPSIS [None]
  - TACHYCARDIA [None]
  - TONGUE COATED [None]
  - VOMITING [None]
